FAERS Safety Report 10029179 (Version 2)
Quarter: 2014Q1

REPORT INFORMATION
  Report Type: Spontaneous
  Country: CH (occurrence: CH)
  Receive Date: 20140321
  Receipt Date: 20140321
  Transmission Date: 20141002
  Serious: Yes (Other)
  Sender: FDA-Public Use
  Company Number: CH-AMGEN-CHESP2014005603

PATIENT
  Age: 76 Year
  Sex: Female
  Weight: 65 kg

DRUGS (8)
  1. PROLIA [Suspect]
     Indication: OSTEOPOROSIS POSTMENOPAUSAL
     Dosage: 60 MG, UNK
     Route: 058
     Dates: start: 20130227
  2. DIPROPHOS [Suspect]
     Indication: SPINAL DISORDER
     Dosage: 7 MG, UNK
     Route: 013
     Dates: start: 20131125, end: 20131125
  3. ARCOXIA [Concomitant]
     Indication: OSTEOARTHRITIS
     Dosage: 60 MG, QD
     Route: 048
  4. COLCHICINE [Concomitant]
     Indication: CHRONIC OBSTRUCTIVE PULMONARY DISEASE
     Dosage: 0.5 MG, QD
     Route: 048
  5. SIRDALUD [Concomitant]
     Indication: OSTEOARTHRITIS
     Dosage: 4 MG, AS NECESSARY
     Route: 065
  6. ROPIVACAINE [Concomitant]
     Indication: SPINAL DISORDER
     Dosage: 0.5 %, UNK 3 ML
     Route: 013
     Dates: start: 20131125, end: 20131125
  7. LIDOCAINE [Concomitant]
     Dosage: 3.5 MG, UNK 3 ML 0.5 %
     Route: 065
  8. TRIAMCORT                          /00031901/ [Concomitant]
     Dosage: 20 MG, UNK

REACTIONS (3)
  - Osteoarthritis [Unknown]
  - General physical health deterioration [Recovered/Resolved]
  - Asthenia [Unknown]
